FAERS Safety Report 9401559 (Version 2)
Quarter: 2013Q3

REPORT INFORMATION
  Report Type: Spontaneous
  Country: US (occurrence: US)
  Receive Date: 20130716
  Receipt Date: 20130724
  Transmission Date: 20140515
  Serious: No
  Sender: FDA-Public Use
  Company Number: US-009507513-1307USA007447

PATIENT
  Age: 88 Year
  Sex: Male
  Weight: 78.5 kg

DRUGS (6)
  1. MIRALAX [Suspect]
     Indication: COLONOSCOPY
     Dosage: 510 G, EVER HALF HOUR
     Route: 048
     Dates: start: 20130425, end: 20130425
  2. MIRALAX [Suspect]
     Indication: MEDICAL OBSERVATION
  3. WARFARIN [Concomitant]
     Indication: ATRIAL FIBRILLATION
     Dosage: UNK, UNKNOWN
  4. WARFARIN [Concomitant]
     Indication: PACEMAKER GENERATED RHYTHM
  5. SIMVASTATIN [Concomitant]
     Indication: PRODUCT USED FOR UNKNOWN INDICATION
     Dosage: UNK, UNKNOWN
  6. METOPROLOL [Concomitant]
     Indication: HYPERTENSION
     Dosage: UNK, UNKNOWN

REACTIONS (3)
  - Vomiting [Recovered/Resolved]
  - Prescribed overdose [Unknown]
  - Off label use [Unknown]
